FAERS Safety Report 6860129-5 (Version None)
Quarter: 2010Q3

REPORT INFORMATION
  Report Type: 
  Country: None (occurrence: None)
  Receive Date: 20100720
  Receipt Date: 20100708
  Transmission Date: 20110219
  Serious: Yes (Hospitalization, Other)
  Sender: FDA-Public Use
  Company Number: US-PFIZER INC-2010076944

PATIENT
  Sex: Female
  Weight: 68 kg

DRUGS (3)
  1. NARDIL [Suspect]
     Indication: PANIC ATTACK
     Dosage: 15 MG, 2X/DAY
     Route: 048
     Dates: start: 19790701, end: 20100514
  2. NARDIL [Suspect]
     Indication: DEPRESSION
  3. LORAZEPAM [Concomitant]
     Dosage: 1 MG, 2X/DAY

REACTIONS (8)
  - ARRHYTHMIA [None]
  - ATRIOVENTRICULAR BLOCK SECOND DEGREE [None]
  - DYSPNOEA [None]
  - HYPERSENSITIVITY [None]
  - HYPERTENSIVE CRISIS [None]
  - INSOMNIA [None]
  - SUICIDAL IDEATION [None]
  - WITHDRAWAL SYNDROME [None]
